FAERS Safety Report 5007195-X (Version None)
Quarter: 2006Q1

REPORT INFORMATION
  Report Type: 
  Country: None (occurrence: None)
  Receive Date: 20060320
  Receipt Date: 20050520
  Transmission Date: 20060701
  Serious: Yes (Other)
  Sender: FDA-Public Use
  Company Number: 2005-05-1738

PATIENT
  Age: 26 Year
  Sex: Female
  Weight: 47.1741 kg

DRUGS (8)
  1. PEG-INTRON [Suspect]
     Indication: HEPATITIS C
     Dosage: 80 MCG QWK SUBCUTANEOUS
     Route: 058
     Dates: start: 20040604, end: 20050418
  2. REBETOL [Suspect]
     Indication: HEPATITIS C
     Dosage: 800 MG QD ORAL
     Route: 048
     Dates: start: 20040604, end: 20050422
  3. KLONOPIN [Concomitant]
  4. PREVACID [Concomitant]
  5. ORTHO TRI-CYCLEN [Concomitant]
  6. TYLENOL W/ CLODEINE NO. 3 [Concomitant]
  7. TAPAZOLE [Concomitant]
  8. WELLBUTRIN [Concomitant]

REACTIONS (7)
  - ABORTION SPONTANEOUS [None]
  - ARTHRALGIA [None]
  - DRUG EXPOSURE DURING PREGNANCY [None]
  - GASTROOESOPHAGEAL REFLUX DISEASE [None]
  - HEADACHE [None]
  - INSOMNIA [None]
  - WHITE BLOOD CELL COUNT DECREASED [None]
